FAERS Safety Report 21989506 (Version 1)
Quarter: 2023Q1

REPORT INFORMATION
  Report Type: Spontaneous
  Country: US (occurrence: US)
  Receive Date: 20230214
  Receipt Date: 20230214
  Transmission Date: 20230418
  Serious: Yes (Hospitalization)
  Sender: FDA-Public Use
  Company Number: US-MYLANLABS-2023M1013804

PATIENT
  Age: 17 Year
  Sex: Female

DRUGS (5)
  1. FOSPHENYTOIN [Suspect]
     Active Substance: FOSPHENYTOIN
     Indication: Encephalitis autoimmune
     Dosage: 60 MILLIGRAM/KILOGRAM
     Route: 065
  2. LEVETIRACETAM [Suspect]
     Active Substance: LEVETIRACETAM
     Indication: Encephalitis autoimmune
     Dosage: 60 MILLIGRAM/KILOGRAM
     Route: 065
  3. MIDAZOLAM [Suspect]
     Active Substance: MIDAZOLAM
     Indication: Encephalitis autoimmune
     Dosage: 1.5 MILLIGRAM/KILOGRAM, QH
     Route: 065
  4. PHENOBARBITAL [Suspect]
     Active Substance: PHENOBARBITAL
     Indication: Encephalitis autoimmune
     Dosage: 30 MILLIGRAM/KILOGRAM
     Route: 065
  5. LACOSAMIDE [Suspect]
     Active Substance: LACOSAMIDE
     Indication: Encephalitis autoimmune
     Dosage: 6 MILLIGRAM/KILOGRAM
     Route: 065

REACTIONS (1)
  - Drug ineffective [Unknown]
